FAERS Safety Report 13057172 (Version 3)
Quarter: 2017Q1

REPORT INFORMATION
  Report Type: Report from Study
  Country: BR (occurrence: BR)
  Receive Date: 20161222
  Receipt Date: 20170317
  Transmission Date: 20170428
  Serious: Yes (Hospitalization)
  Sender: FDA-Public Use
  Company Number: PHHY2016BR174668

PATIENT
  Sex: Female
  Weight: 32 kg

DRUGS (1)
  1. EXJADE [Suspect]
     Active Substance: DEFERASIROX
     Indication: SICKLE CELL ANAEMIA
     Dosage: 500 MG, QD
     Route: 048

REACTIONS (6)
  - Sickle cell anaemia with crisis [Unknown]
  - Transferrin saturation increased [Unknown]
  - Nosocomial infection [Unknown]
  - Viral infection [Unknown]
  - Nasopharyngitis [Unknown]
  - Serum ferritin increased [Not Recovered/Not Resolved]
